FAERS Safety Report 9780763 (Version 2)
Quarter: 2014Q1

REPORT INFORMATION
  Report Type: Spontaneous
  Country: DE (occurrence: DE)
  Receive Date: 20131224
  Receipt Date: 20140312
  Transmission Date: 20141002
  Serious: Yes (Other)
  Sender: FDA-Public Use
  Company Number: PHHY2013DE149675

PATIENT
  Sex: Female
  Weight: 74 kg

DRUGS (20)
  1. AFINITOR [Suspect]
     Indication: BREAST CANCER METASTATIC
     Dosage: 10 MG, DAILY
     Route: 048
     Dates: start: 201310
  2. EXEMESTANE [Suspect]
     Indication: BREAST CANCER METASTATIC
     Dosage: 25 MG, DAILY
     Route: 048
     Dates: start: 201310
  3. ZOMETA [Suspect]
     Dosage: 4 MG, DAILY
     Route: 042
     Dates: start: 200904, end: 201310
  4. ABNOBAVISCUM [Concomitant]
     Dosage: 20 MG, QW2
     Route: 058
  5. CHOLEODORON [Concomitant]
  6. HEPATODORON [Concomitant]
     Dosage: 2 DF, BID
  7. CARDUUS MARIANUS [Concomitant]
     Dosage: 1 DF, QID
  8. ZOLEDRONATE [Concomitant]
     Dosage: 4 MG, QMO
  9. BUPRENORPHINE [Concomitant]
     Dosage: PLASTER CHANGE EVERY 3 DAYS
  10. SODIUM SELENITE [Concomitant]
     Dosage: 100 UG, QD
  11. CIMICIFUGA [Concomitant]
  12. CRANBERRY BERCO [Concomitant]
     Dosage: 1 DF, TID
  13. MACROGOL [Concomitant]
     Dosage: 1 DF, BID
  14. TRIAMTERENE AND HYDROCHLOROTHIAZID [Concomitant]
     Dosage: 0.5 DF, QD
  15. ZOPICLON [Concomitant]
     Dosage: 7.5 MG, QD (ONLY IF NECESSARY)
  16. MAGNESIUM ASPARTATE [Concomitant]
     Dosage: 5 MMOL, QD
  17. CLINDAMYCIN [Concomitant]
     Dosage: 300 MG, TID
  18. NUX VOMICA                         /06437101/ [Concomitant]
  19. ETORICOXIB [Concomitant]
     Dosage: 60 MG, PRN
  20. BUPRENORPHINE [Concomitant]
     Dosage: 0.4 MG, UNK

REACTIONS (1)
  - Osteonecrosis of jaw [Not Recovered/Not Resolved]
